FAERS Safety Report 8924453 (Version 2)
Quarter: 2013Q1

REPORT INFORMATION
  Report Type: Spontaneous
  Country: US (occurrence: US)
  Receive Date: 20121127
  Receipt Date: 20130125
  Transmission Date: 20140127
  Serious: No
  Sender: FDA-Public Use
  Company Number: US-009507513-1211USA007937

PATIENT
  Sex: Male

DRUGS (3)
  1. DULERA [Suspect]
     Indication: ASTHMA
     Dosage: 2 INHALATIONS IN THE MORNING AND 2 AT NIGHT
     Route: 055
     Dates: start: 201208
  2. OMEPRAZOLE [Concomitant]
  3. ATENOLOL [Concomitant]

REACTIONS (3)
  - Cough [Not Recovered/Not Resolved]
  - Dry mouth [Not Recovered/Not Resolved]
  - Product quality issue [Unknown]
